FAERS Safety Report 22655916 (Version 1)
Quarter: 2023Q2

REPORT INFORMATION
  Report Type: Spontaneous
  Country: CN (occurrence: CN)
  Receive Date: 20230629
  Receipt Date: 20230629
  Transmission Date: 20230722
  Serious: Yes (Hospitalization)
  Sender: FDA-Public Use
  Company Number: CN-PFIZER INC-PV202300112691

PATIENT
  Age: 2 Year
  Sex: Male
  Weight: 14.2 kg

DRUGS (11)
  1. CYTARABINE [Suspect]
     Active Substance: CYTARABINE
     Indication: Chemotherapy
     Dosage: 0.030000 G, 1X/DAY
     Route: 037
     Dates: start: 20230601, end: 20230601
  2. DEXRAZOXANE [Suspect]
     Active Substance: DEXRAZOXANE
     Indication: Chemotherapy
     Dosage: 250.000 MG, 1X/DAY
     Route: 041
     Dates: start: 20230601, end: 20230603
  3. METHOTREXATE [Suspect]
     Active Substance: METHOTREXATE
     Indication: Chemotherapy
     Dosage: 0.012500 G, 1X/DAY
     Route: 037
     Dates: start: 20230601, end: 20230601
  4. IDARUBICIN HYDROCHLORIDE [Suspect]
     Active Substance: IDARUBICIN HYDROCHLORIDE
     Indication: Chemotherapy
     Dosage: 5.000 MG, 1X/DAY
     Route: 041
     Dates: start: 20230601, end: 20230603
  5. VENETOCLAX [Suspect]
     Active Substance: VENETOCLAX
     Indication: Chemotherapy
     Dosage: 50.00000 MG, 1X/DAY
     Route: 048
     Dates: start: 20230601, end: 20230621
  6. DEXAMETHASONE SODIUM PHOSPHATE [Concomitant]
     Active Substance: DEXAMETHASONE SODIUM PHOSPHATE
     Indication: Antiallergic therapy
     Dosage: 1.000 MG, 1X/DAY
     Route: 037
     Dates: start: 20230601, end: 20230601
  7. FU FANG HUANG DAI [Concomitant]
     Indication: Chemotherapy
     Dosage: 2.000 TABLETS, 3X/DAY
     Route: 048
     Dates: start: 20230606, end: 20230619
  8. TROPISETRON HYDROCHLORIDE [Concomitant]
     Active Substance: TROPISETRON HYDROCHLORIDE
     Indication: Prophylaxis of nausea and vomiting
     Dosage: 1.500000 MG, 1X/DAY
     Route: 041
     Dates: start: 20230601, end: 20230603
  9. DEXTROSE [Concomitant]
     Active Substance: DEXTROSE\DEXTROSE MONOHYDRATE
     Indication: Vehicle solution use
     Dosage: 50.00000 ML, 1X/DAY
     Route: 041
     Dates: start: 20230601, end: 20230603
  10. DEXTROSE [Concomitant]
     Active Substance: DEXTROSE\DEXTROSE MONOHYDRATE
     Dosage: 100.0000 ML, 1X/DAY
     Route: 041
     Dates: start: 20230601, end: 20230603
  11. SODIUM CHLORIDE [Concomitant]
     Active Substance: SODIUM CHLORIDE
     Dosage: 1.5 ML, 1X/DAY
     Route: 037
     Dates: start: 20230601, end: 20230601

REACTIONS (6)
  - Granulocyte count decreased [Recovering/Resolving]
  - Platelet count decreased [Recovering/Resolving]
  - Red blood cell count decreased [Recovering/Resolving]
  - C-reactive protein increased [Unknown]
  - Procalcitonin increased [Unknown]
  - Myelosuppression [Recovering/Resolving]

NARRATIVE: CASE EVENT DATE: 20230611
